FAERS Safety Report 14078479 (Version 1)
Quarter: 2017Q4

REPORT INFORMATION
  Report Type: Spontaneous
  Country: US (occurrence: None)
  Receive Date: 20171012
  Receipt Date: 20171012
  Transmission Date: 20180321
  Serious: Yes (Death, Hospitalization)
  Sender: FDA-Public Use
  Company Number: None

PATIENT
  Age: 45 Year
  Sex: Male
  Weight: 92.7 kg

DRUGS (4)
  1. MIRCERA [Suspect]
     Active Substance: METHOXY POLYETHYLENE GLYCOL-EPOETIN BETA
     Indication: NEPHROGENIC ANAEMIA
     Dosage: 100 MCG EVERY 2 WEEKS IVP
     Route: 042
     Dates: start: 20160215, end: 20160215
  2. COMBISET DIALYZER LINES [Concomitant]
  3. FRESENIUS 2008K2 MACHINE [Concomitant]
  4. OPTIFLUX F180 NR DIALYZER [Concomitant]

REACTIONS (5)
  - Pulse absent [None]
  - Seizure [None]
  - Vomiting [None]
  - Unresponsive to stimuli [None]
  - Dyspnoea [None]

NARRATIVE: CASE EVENT DATE: 20160215
